FAERS Safety Report 7240983-8 (Version None)
Quarter: 2011Q1

REPORT INFORMATION
  Report Type: 
  Country: None (occurrence: None)
  Receive Date: 20110124
  Receipt Date: 20110111
  Transmission Date: 20110831
  Serious: Yes (Hospitalization)
  Sender: FDA-Public Use
  Company Number: US-ELI_LILLY_AND_COMPANY-US201101004637

PATIENT
  Sex: Male
  Weight: 100.68 kg

DRUGS (7)
  1. ASPIRIN [Concomitant]
     Dosage: 325 MG, DAILY (1/D)
     Dates: start: 20101230
  2. PRASUGREL HYDROCHLORIDE [Suspect]
     Indication: ACUTE CORONARY SYNDROME
     Dosage: 10 MG, ONCE
     Dates: start: 20101229, end: 20101229
  3. TRILIPIX [Concomitant]
     Indication: HYPERLIPIDAEMIA
     Dosage: 135 MG, DAILY (1/D)
     Route: 048
  4. LIPITOR [Concomitant]
     Indication: HYPERLIPIDAEMIA
     Dosage: 40 MG, DAILY (1/D)
     Route: 048
  5. LISINOPRIL [Concomitant]
     Indication: HYPERTENSION
     Dosage: 5 MG, DAILY (1/D)
     Route: 048
  6. LEXAPRO [Concomitant]
     Indication: ANXIETY
     Dosage: 10 MG, DAILY (1/D)
     Route: 048
  7. PRASUGREL HYDROCHLORIDE [Suspect]
     Dosage: 10 MG, DAILY (1/D)
     Dates: start: 20101230

REACTIONS (1)
  - MYOCARDIAL INFARCTION [None]
